FAERS Safety Report 16255550 (Version 1)
Quarter: 2019Q2

REPORT INFORMATION
  Report Type: Spontaneous
  Country: US (occurrence: US)
  Receive Date: 20190326
  Receipt Date: 20190326
  Transmission Date: 20190711
  Serious: Yes (Hospitalization)
  Sender: FDA-Public Use
  Company Number: None

PATIENT
  Age: 64 Year
  Sex: Male
  Weight: 81.65 kg

DRUGS (1)
  1. XELODA [Suspect]
     Active Substance: CAPECITABINE
     Dates: end: 20190115

REACTIONS (5)
  - Pelvic abscess [None]
  - Nausea [None]
  - Vomiting [None]
  - Flatulence [None]
  - Anastomotic leak [None]

NARRATIVE: CASE EVENT DATE: 20190312
